FAERS Safety Report 5761181-0 (Version None)
Quarter: 2008Q2

REPORT INFORMATION
  Report Type: 
  Country: None (occurrence: None)
  Receive Date: 20080606
  Receipt Date: 20080603
  Transmission Date: 20081010
  Serious: Yes (Death)
  Sender: FDA-Public Use
  Company Number: B0523239A

PATIENT
  Sex: Female

DRUGS (9)
  1. PAXIL [Suspect]
     Indication: DRUG USE FOR UNKNOWN INDICATION
     Route: 048
     Dates: end: 20080528
  2. PAXIL [Suspect]
     Dosage: 20MG PER DAY
     Route: 048
     Dates: start: 20080529, end: 20080529
  3. UNKNOWN MEDICATION [Concomitant]
     Route: 048
  4. GASMOTIN [Concomitant]
     Route: 048
  5. MUCOSTA [Concomitant]
     Route: 048
  6. UNKNOWN MEDICATION [Concomitant]
     Route: 048
  7. LANSOPRAZOLE [Concomitant]
     Route: 048
  8. DEZOLAM [Concomitant]
     Route: 048
  9. MAGMITT [Concomitant]
     Route: 048

REACTIONS (2)
  - DEATH [None]
  - SEROTONIN SYNDROME [None]
